FAERS Safety Report 6843575-5 (Version None)
Quarter: 2010Q3

REPORT INFORMATION
  Report Type: 
  Country: None (occurrence: None)
  Receive Date: 20100712
  Receipt Date: 20100701
  Transmission Date: 20110219
  Serious: Yes (Other)
  Sender: FDA-Public Use
  Company Number: 2010EU003082

PATIENT
  Age: 5 Year
  Sex: Male

DRUGS (1)
  1. VESIKUR (SOLIFENACIN) TABLET, 5MG [Suspect]
     Indication: HYPERTONIC BLADDER

REACTIONS (2)
  - CONJUNCTIVITIS [None]
  - OFF LABEL USE [None]
